FAERS Safety Report 8127597-2 (Version None)
Quarter: 2012Q1

REPORT INFORMATION
  Report Type: 
  Country: None (occurrence: None)
  Receive Date: 20120210
  Receipt Date: 20120201
  Transmission Date: 20120608
  Serious: Yes (Other)
  Sender: FDA-Public Use
  Company Number: CA-ABBOTT-11P-028-0847932-03

PATIENT
  Sex: Male
  Weight: 59 kg

DRUGS (28)
  1. HUMIRA [Suspect]
     Route: 058
  2. IMURAN [Concomitant]
     Indication: PROPHYLAXIS AGAINST TRANSPLANT REJECTION
  3. NEORAL [Concomitant]
     Indication: PROPHYLAXIS AGAINST TRANSPLANT REJECTION
     Dates: start: 19950801, end: 20091002
  4. NEORAL [Concomitant]
     Dosage: AT NIGHT
     Dates: start: 20091003
  5. APO-NAPROSYN [Concomitant]
     Indication: ARTHRALGIA
     Dosage: TWICE A DAY BUT AS NEEDED
     Dates: start: 20081101
  6. HUMIRA [Suspect]
     Indication: CROHN'S DISEASE
     Dosage: ONCE
     Route: 058
     Dates: start: 20080408, end: 20080408
  7. PANTOPRAZOLE SODIUM [Concomitant]
     Indication: GASTROINTESTINAL HAEMORRHAGE
     Route: 048
     Dates: start: 20101019
  8. CARBOCAL D [Concomitant]
     Indication: OSTEOPOROSIS PROPHYLAXIS
  9. PALAFER [Concomitant]
     Indication: ANAEMIA
     Dates: start: 20081201
  10. VANCOMYCIN [Concomitant]
     Indication: CHOLANGITIS
     Route: 042
     Dates: start: 20110716
  11. PREDNISONE TAB [Concomitant]
     Route: 048
     Dates: start: 20100901, end: 20101001
  12. CARBOCAL D [Concomitant]
     Indication: STEROID THERAPY
     Dates: start: 19990501
  13. NEORAL [Concomitant]
     Dates: start: 20091003
  14. AVELOX [Concomitant]
     Indication: CHOLANGITIS
     Route: 042
     Dates: start: 20110716
  15. TYLENOL-500 [Concomitant]
     Indication: ARTHRALGIA
     Dates: start: 20090801
  16. GRAVOL TAB [Concomitant]
     Indication: NAUSEA
     Route: 042
     Dates: start: 20110716, end: 20110716
  17. MAGNESIUM SULFATE [Concomitant]
     Indication: HYPOMAGNESAEMIA
     Route: 042
     Dates: start: 20110717, end: 20110717
  18. HUMIRA [Suspect]
     Dosage: ONCE
     Route: 058
  19. HUMIRA [Suspect]
     Route: 058
     Dates: start: 20080813
  20. EXTRA STRENGTH TYLENOL [Concomitant]
     Indication: HEADACHE
     Dates: start: 19950601
  21. ACETAMINOPHEN [Concomitant]
     Indication: PYREXIA
     Dosage: 2 TABLETS ONCE
     Route: 048
     Dates: start: 20110716, end: 20110716
  22. HUMIRA [Suspect]
     Route: 058
     Dates: end: 20110803
  23. PREDNISONE TAB [Concomitant]
     Indication: DRUG DEPENDENCE
     Dates: start: 20110324
  24. PREDNISONE TAB [Concomitant]
     Dates: start: 20090128, end: 20090506
  25. PANTOPRAZOLE SODIUM [Concomitant]
     Indication: PROPHYLAXIS AGAINST GASTROINTESTINAL ULCER
  26. IMURAN [Concomitant]
     Indication: CROHN'S DISEASE
     Dates: start: 19950801
  27. PREDNISONE TAB [Concomitant]
     Indication: CROHN'S DISEASE
     Dosage: IN SLOW TAPERING
     Dates: start: 20080125, end: 20090127
  28. PREDNISONE TAB [Concomitant]
     Dates: start: 20090507, end: 20100901

REACTIONS (1)
  - GASTROINTESTINAL STROMAL TUMOUR [None]
